FAERS Safety Report 7090894-6 (Version None)
Quarter: 2010Q4

REPORT INFORMATION
  Report Type: 
  Country: None (occurrence: None)
  Receive Date: 20101109
  Receipt Date: 20101101
  Transmission Date: 20110411
  Serious: No
  Sender: FDA-Public Use
  Company Number: US-B.I. PHARMACEUTICALS,INC./RIDGEFIELD-2010-BP-12279BP

PATIENT
  Sex: Female

DRUGS (4)
  1. ZANTAC 150 [Suspect]
     Indication: DYSPEPSIA
     Dosage: 600 MG
     Route: 048
     Dates: start: 20100701
  2. ARMOUR'S THYROID [Concomitant]
     Indication: HYPOTHYROIDISM
     Route: 048
  3. HRT [Concomitant]
     Indication: MENOPAUSE
     Route: 048
  4. MEDICATIONS NOT FURTHER SPECIFIED [Concomitant]
     Indication: HYPERSENSITIVITY
     Route: 048

REACTIONS (1)
  - DRUG INEFFECTIVE [None]
